FAERS Safety Report 6300670-7 (Version None)
Quarter: 2009Q3

REPORT INFORMATION
  Report Type: 
  Country: None (occurrence: None)
  Receive Date: 20090807
  Receipt Date: 20070719
  Transmission Date: 20100115
  Serious: Yes (Hospitalization, Other)
  Sender: FDA-Public Use
  Company Number: US-ASTRAZENECA-2007UW10963

PATIENT
  Age: 20703 Day
  Sex: Female
  Weight: 83.9 kg

DRUGS (17)
  1. SEROQUEL [Suspect]
     Indication: SLEEP DISORDER
     Dosage: 25 MG TO 200 MG
     Route: 048
     Dates: start: 20040314
  2. SEROQUEL [Suspect]
     Route: 048
     Dates: start: 20041229, end: 20050715
  3. RISPERDAL [Concomitant]
     Dosage: 0.5 MG TO 1 MG
     Dates: start: 20051109
  4. NABUMETONE [Concomitant]
     Route: 048
     Dates: start: 20041201
  5. NORVASC [Concomitant]
     Route: 048
     Dates: start: 20050106
  6. PROTONIX [Concomitant]
     Route: 048
     Dates: start: 20050106
  7. HYDROCHLOROTHIAZIDE [Concomitant]
     Route: 048
     Dates: start: 20050106
  8. HUMALOG MIX 75/25 [Concomitant]
     Dosage: 40 UNITS AT BREAKFAST, 20 UNITS AT LUNCH, 30 UNITS AT SUPPER
     Dates: start: 20050210
  9. ALTACE [Concomitant]
     Dosage: 2.5 MG TO 10 MG
     Dates: start: 20050210
  10. BD INSULIN [Concomitant]
     Dosage: U100-1/2 ML
     Dates: start: 20050215
  11. ZOCOR [Concomitant]
     Dates: start: 20050405
  12. LORATADINE [Concomitant]
     Dates: start: 20050601
  13. VYTORIN [Concomitant]
     Dosage: 10/40
     Dates: start: 20050616
  14. BENZTROPINE MESYLATE [Concomitant]
     Dates: start: 20051121
  15. LEXAPRO [Concomitant]
     Dates: start: 20051121
  16. DRISDOL [Concomitant]
     Dosage: 50000 UNITS
     Dates: start: 20051128
  17. LOVASTATIN [Concomitant]
     Dates: start: 20051202

REACTIONS (11)
  - CATARACT DIABETIC [None]
  - DIABETES MELLITUS INADEQUATE CONTROL [None]
  - DIABETES WITH HYPEROSMOLARITY [None]
  - DIABETIC CYSTOPATHY [None]
  - DIABETIC EYE DISEASE [None]
  - DIABETIC NEPHROPATHY [None]
  - HYPERGLYCAEMIA [None]
  - HYPERGLYCAEMIC HYPEROSMOLAR NONKETOTIC SYNDROME [None]
  - MULTIPLE INJURIES [None]
  - RENAL FAILURE CHRONIC [None]
  - TYPE 2 DIABETES MELLITUS [None]
